FAERS Safety Report 24445276 (Version 1)
Quarter: 2024Q4

REPORT INFORMATION
  Report Type: Spontaneous
  Country: US (occurrence: None)
  Receive Date: 20241011
  Receipt Date: 20241011
  Transmission Date: 20250115
  Serious: Yes (Other)
  Sender: Public
  Company Number: None

PATIENT
  Age: 78 Year
  Sex: Male
  Weight: 83.91 kg

DRUGS (1)
  1. VINCRISTINE [Suspect]
     Active Substance: VINCRISTINE

REACTIONS (7)
  - Ankle fracture [None]
  - Complication associated with device [None]
  - Immune-mediated adverse reaction [None]
  - Hypersensitivity [None]
  - Hypersensitivity [None]
  - Implant site reaction [None]
  - Dermatitis [None]

NARRATIVE: CASE EVENT DATE: 20240309
